FAERS Safety Report 20057828 (Version 1)
Quarter: 2021Q4

REPORT INFORMATION
  Report Type: Spontaneous
  Country: US (occurrence: US)
  Receive Date: 20211111
  Receipt Date: 20211111
  Transmission Date: 20220303
  Serious: Yes (Death, Hospitalization, Other)
  Sender: FDA-Public Use
  Company Number: US-APOTEX-2021AP045320

PATIENT
  Age: 69 Year
  Sex: Male

DRUGS (2)
  1. GABAPENTIN [Suspect]
     Active Substance: GABAPENTIN
     Indication: Product used for unknown indication
     Dosage: UNK
     Route: 065
  2. HYDROMORPHONE [Suspect]
     Active Substance: HYDROMORPHONE
     Indication: Pain management
     Dosage: UNK
     Route: 065

REACTIONS (3)
  - Unresponsive to stimuli [Fatal]
  - Respiratory arrest [Fatal]
  - Respiratory depression [Fatal]
